FAERS Safety Report 5129251-8 (Version None)
Quarter: 2006Q4

REPORT INFORMATION
  Report Type: 
  Country: None (occurrence: None)
  Receive Date: 20061011
  Receipt Date: 20061005
  Transmission Date: 20070319
  Serious: Yes (Other)
  Sender: FDA-Public Use
  Company Number: THQ2006A00738

PATIENT
  Age: 55 Year
  Sex: Female

DRUGS (5)
  1. ACTOS [Suspect]
     Indication: DIABETES MELLITUS
     Dosage: 30 MG (30 MG, 1 IN 1 D) PER ORAL
     Route: 048
     Dates: start: 20051010, end: 20060110
  2. LIPITOR [Concomitant]
  3. LOVATEX              (LOVASTATIN) [Concomitant]
  4. DIAMICRON MR            (GLICLAZIDE) [Concomitant]
  5. GLUCOPHAGE [Concomitant]

REACTIONS (5)
  - ALANINE AMINOTRANSFERASE INCREASED [None]
  - ASTHENIA [None]
  - DIZZINESS [None]
  - HYPERHIDROSIS [None]
  - VISUAL DISTURBANCE [None]
